FAERS Safety Report 21473342 (Version 3)
Quarter: 2022Q4

REPORT INFORMATION
  Report Type: Spontaneous
  Country: JP (occurrence: JP)
  Receive Date: 20221018
  Receipt Date: 20221129
  Transmission Date: 20230113
  Serious: Yes (Hospitalization, Other)
  Sender: FDA-Public Use
  Company Number: JP-PFIZER INC-PV202200082530

PATIENT
  Age: 70 Year
  Sex: Female
  Weight: 41 kg

DRUGS (9)
  1. BOSULIF [Suspect]
     Active Substance: BOSUTINIB MONOHYDRATE
     Indication: Chronic myeloid leukaemia
     Dosage: 100 MG, 1X/DAY
     Route: 048
     Dates: start: 20191121, end: 20191127
  2. BOSULIF [Suspect]
     Active Substance: BOSUTINIB MONOHYDRATE
     Dosage: 200 MG, 1X/DAY
     Route: 048
     Dates: start: 20191128, end: 20191211
  3. BOSULIF [Suspect]
     Active Substance: BOSUTINIB MONOHYDRATE
     Dosage: 300 MG, 1X/DAY
     Route: 048
     Dates: start: 20191212, end: 20201007
  4. BOSULIF [Suspect]
     Active Substance: BOSUTINIB MONOHYDRATE
     Dosage: 400 MG, 1X/DAY
     Route: 048
     Dates: start: 20201008, end: 20220112
  5. AZOSEMIDE [Concomitant]
     Active Substance: AZOSEMIDE
     Indication: Pleural effusion
     Dosage: 30 MG, 1X/DAY
     Route: 048
     Dates: start: 20191121
  6. POTASSIUM ASPARTATE [Concomitant]
     Active Substance: POTASSIUM ASPARTATE
     Indication: Pleural effusion
     Dosage: 1.8 MEQ, 1X/DAY
     Route: 048
     Dates: start: 20191121
  7. AMLODIPINE MALEATE [Concomitant]
     Active Substance: AMLODIPINE MALEATE
     Indication: Hypertension
     Dosage: 2.5 MG, 1X/DAY
     Route: 048
  8. URSO [Concomitant]
     Active Substance: URSODIOL
     Indication: Autoimmune hepatitis
     Dosage: 100 MG, 3X/DAY
     Route: 048
  9. SPIRONOLACTONE [Concomitant]
     Active Substance: SPIRONOLACTONE
     Indication: Pleural effusion
     Dosage: 25 MG, 1X/DAY
     Route: 048
     Dates: start: 20211223

REACTIONS (1)
  - Haemothorax [Recovering/Resolving]

NARRATIVE: CASE EVENT DATE: 20220110
